FAERS Safety Report 5587911-9 (Version None)
Quarter: 2008Q1

REPORT INFORMATION
  Report Type: 
  Country: None (occurrence: None)
  Receive Date: 20080111
  Receipt Date: 20080108
  Transmission Date: 20080703
  Serious: Yes (Other)
  Sender: FDA-Public Use
  Company Number: US-BAYER-200715024NA

PATIENT
  Age: 52 Year
  Sex: Male
  Weight: 80 kg

DRUGS (1)
  1. MAGNEVIST [Suspect]
     Indication: NUCLEAR MAGNETIC RESONANCE IMAGING
     Dosage: UNIT DOSE: 15 ML
     Route: 042
     Dates: start: 20071125, end: 20071125

REACTIONS (6)
  - EYE SWELLING [None]
  - LACRIMATION INCREASED [None]
  - PRESYNCOPE [None]
  - RESPIRATORY TRACT CONGESTION [None]
  - SYNCOPE VASOVAGAL [None]
  - VOMITING [None]
